FAERS Safety Report 23323424 (Version 1)
Quarter: 2023Q4

REPORT INFORMATION
  Report Type: Spontaneous
  Country: US (occurrence: None)
  Receive Date: 20231220
  Receipt Date: 20231220
  Transmission Date: 20240110
  Serious: No
  Sender: FDA-Public Use
  Company Number: US-ROCHE-3422989

PATIENT
  Age: 29 Year
  Sex: Male
  Weight: 79.45 kg

DRUGS (4)
  1. RITUXAN [Suspect]
     Active Substance: RITUXIMAB
     Indication: Encephalitis
     Dosage: 500 MG/ 50 ML VIAL?REPEAT EVERY 12 WEEKS UNTIL SYMPTOMS RESOLVE
     Route: 042
     Dates: start: 20230912
  2. BENADRYL [Suspect]
     Active Substance: DIPHENHYDRAMINE HYDROCHLORIDE
     Indication: Premedication
     Dosage: 2X50 MG DOSES GIVEN
     Route: 065
     Dates: start: 20230912
  3. PAXLOVID [Concomitant]
     Active Substance: NIRMATRELVIR\RITONAVIR
     Dosage: 2X150MG AND 1X100MG TWICE DAILY ;ONGOING: YES
     Route: 048
     Dates: start: 20230911
  4. SEROQUEL [Concomitant]
     Active Substance: QUETIAPINE FUMARATE
     Dosage: STARTED AT 400 MG/DAY AND CURRENTLY TAPERING DOWN ;ONGOING: YES
     Route: 048
     Dates: start: 20230720

REACTIONS (2)
  - Hypotension [Not Recovered/Not Resolved]
  - Off label use [Unknown]

NARRATIVE: CASE EVENT DATE: 20230912
